FAERS Safety Report 24012366 (Version 1)
Quarter: 2024Q2

REPORT INFORMATION
  Report Type: Spontaneous
  Country: US (occurrence: US)
  Receive Date: 20240625
  Receipt Date: 20240625
  Transmission Date: 20240716
  Serious: Yes (Life-Threatening, Hospitalization, Other)
  Sender: FDA-Public Use
  Company Number: US-ENDO USA, INC.-2024-002705

PATIENT
  Age: 41 Year
  Sex: Male

DRUGS (1)
  1. BUPROPION HYDROCHLORIDE [Suspect]
     Active Substance: BUPROPION HYDROCHLORIDE
     Indication: Product used for unknown indication
     Dosage: APPROXIMATELY 150 TABLETS OF 150 MG, UNKNOWN
     Route: 065

REACTIONS (3)
  - Haemodynamic instability [Recovered/Resolved]
  - Bezoar [Recovered/Resolved]
  - Overdose [Recovered/Resolved]
